FAERS Safety Report 6412608-2 (Version None)
Quarter: 2009Q4

REPORT INFORMATION
  Report Type: 
  Country: None (occurrence: None)
  Receive Date: 20091023
  Receipt Date: 20091013
  Transmission Date: 20100525
  Serious: Yes (Disabling, Other)
  Sender: FDA-Public Use
  Company Number: PHEH2009US08125

PATIENT
  Sex: Female
  Weight: 70.748 kg

DRUGS (6)
  1. RECLAST [Suspect]
     Indication: OSTEOPOROSIS
     Dosage: UNK
     Dates: start: 20081015, end: 20081015
  2. CYMBALTA [Concomitant]
     Indication: DEPRESSION
  3. MOBIC [Concomitant]
     Dosage: 15 MG, UNK
  4. ZESTORETIC [Concomitant]
     Dosage: 20/12.5
  5. PREMPRO [Concomitant]
     Dosage: 1.25 MG, UNK
  6. OMEPRAZOLE [Concomitant]
     Dosage: 20 MG, BID

REACTIONS (3)
  - ANXIETY [None]
  - DEPRESSION [None]
  - SOMNOLENCE [None]
